FAERS Safety Report 24434174 (Version 2)
Quarter: 2024Q4

REPORT INFORMATION
  Report Type: Spontaneous
  Country: US (occurrence: US)
  Receive Date: 20241014
  Receipt Date: 20241106
  Transmission Date: 20250114
  Serious: Yes (Other)
  Sender: ELI LILLY AND COMPANY
  Company Number: US-ELI_LILLY_AND_COMPANY-US202410006980

PATIENT
  Age: 64 Year
  Sex: Male
  Weight: 81.633 kg

DRUGS (12)
  1. ZEPBOUND [Suspect]
     Active Substance: TIRZEPATIDE
     Indication: Weight control
     Dosage: 15 MG, WEEKLY (1/W)
     Route: 058
     Dates: start: 202312, end: 20241005
  2. ZEPBOUND [Suspect]
     Active Substance: TIRZEPATIDE
     Indication: Weight control
     Dosage: 15 MG, WEEKLY (1/W)
     Route: 058
     Dates: start: 202312, end: 20241005
  3. ZEPBOUND [Suspect]
     Active Substance: TIRZEPATIDE
     Indication: Weight control
     Dosage: 15 MG, WEEKLY (1/W)
     Route: 058
     Dates: start: 202312, end: 20241005
  4. ZEPBOUND [Suspect]
     Active Substance: TIRZEPATIDE
     Indication: Weight control
     Dosage: 15 MG, WEEKLY (1/W)
     Route: 058
     Dates: start: 202312, end: 20241005
  5. ZEPBOUND [Suspect]
     Active Substance: TIRZEPATIDE
     Indication: Gastrointestinal disorder
     Dosage: 15 MG, WEEKLY (1/W)
     Route: 058
     Dates: start: 20241015
  6. ZEPBOUND [Suspect]
     Active Substance: TIRZEPATIDE
     Indication: Gastrointestinal disorder
     Dosage: 15 MG, WEEKLY (1/W)
     Route: 058
     Dates: start: 20241015
  7. ZEPBOUND [Suspect]
     Active Substance: TIRZEPATIDE
     Indication: Gastrointestinal disorder
     Dosage: 15 MG, WEEKLY (1/W)
     Route: 058
     Dates: start: 20241015
  8. ZEPBOUND [Suspect]
     Active Substance: TIRZEPATIDE
     Indication: Gastrointestinal disorder
     Dosage: 15 MG, WEEKLY (1/W)
     Route: 058
     Dates: start: 20241015
  9. ZEPBOUND [Suspect]
     Active Substance: TIRZEPATIDE
     Indication: Cardiac disorder
  10. ZEPBOUND [Suspect]
     Active Substance: TIRZEPATIDE
     Indication: Cardiac disorder
  11. ZEPBOUND [Suspect]
     Active Substance: TIRZEPATIDE
     Indication: Cardiac disorder
  12. ZEPBOUND [Suspect]
     Active Substance: TIRZEPATIDE
     Indication: Cardiac disorder

REACTIONS (3)
  - Intestinal obstruction [Recovered/Resolved]
  - Dehydration [Recovered/Resolved]
  - Fatigue [Unknown]
